FAERS Safety Report 11759680 (Version 1)
Quarter: 2015Q4

REPORT INFORMATION
  Report Type: Spontaneous
  Country: US (occurrence: US)
  Receive Date: 20151120
  Receipt Date: 20151120
  Transmission Date: 20160304
  Serious: No
  Sender: FDA-Public Use
  Company Number: US-JNJFOC-20150924882

PATIENT
  Age: 64 Year
  Sex: Female
  Weight: 65.32 kg

DRUGS (8)
  1. WOMENS ROGAINE UNSCENTED [Suspect]
     Active Substance: MINOXIDIL
     Indication: ALOPECIA
     Dosage: FULL CAPFUL ONE TIME
     Route: 061
  2. VALACICLOVIR [Concomitant]
     Active Substance: VALACYCLOVIR HYDROCHLORIDE
     Indication: PRODUCT USED FOR UNKNOWN INDICATION
     Dosage: SINCE 10 YEARS PLUS
     Route: 065
  3. BENICAR [Concomitant]
     Active Substance: OLMESARTAN MEDOXOMIL
     Indication: HYPOTENSION
     Dosage: SINCE 10 YEARS PLUS
     Route: 065
  4. FISH OIL [Concomitant]
     Active Substance: FISH OIL
     Indication: ROUTINE HEALTH MAINTENANCE
     Dosage: SINCE 10 YEARS PLUS
     Route: 065
  5. LINUM USITATISSIMUM SEED OIL [Concomitant]
     Indication: ROUTINE HEALTH MAINTENANCE
     Dosage: SINCE 10 YEARS PLUS
     Route: 065
  6. WOMENS ROGAINE UNSCENTED [Suspect]
     Active Substance: MINOXIDIL
     Route: 061
  7. EVISTA [Concomitant]
     Active Substance: RALOXIFENE HYDROCHLORIDE
     Indication: OSTEOPOROSIS
     Dosage: SINCE 10 YEARS PLUS
     Route: 065
  8. CALCIUM [Concomitant]
     Active Substance: CALCIUM
     Indication: ROUTINE HEALTH MAINTENANCE
     Dosage: SINCE 10 YEARS PLUS
     Route: 065

REACTIONS (4)
  - Incorrect dose administered [Unknown]
  - Drug administered at inappropriate site [Unknown]
  - Product physical issue [Not Recovered/Not Resolved]
  - Alopecia [Not Recovered/Not Resolved]
